FAERS Safety Report 8909856 (Version 4)
Quarter: 2013Q1

REPORT INFORMATION
  Report Type: Spontaneous
  Country: US (occurrence: US)
  Receive Date: 20121114
  Receipt Date: 20130118
  Transmission Date: 20140127
  Serious: Yes (Other)
  Sender: FDA-Public Use
  Company Number: US-PFIZER INC-2012284508

PATIENT
  Age: 65 Year
  Sex: Female

DRUGS (10)
  1. GLUCOTROL [Suspect]
     Indication: TYPE 2 DIABETES MELLITUS
     Dosage: 5 MG, 2 TABS BID
     Route: 048
  2. NEURONTIN [Suspect]
     Indication: PAIN
     Dosage: 1200 MG, 3X/DAY
     Route: 048
  3. PROTONIX [Suspect]
     Indication: GASTROOESOPHAGEAL REFLUX DISEASE
     Dosage: 40 MG, QDAY
     Route: 048
  4. ONGLYZA [Concomitant]
     Dosage: 5 MG, UNK
  5. NORCO [Concomitant]
     Dosage: 10/325 Q4
  6. PRAVASTATIN [Concomitant]
     Dosage: 40 MG, UNK
  7. LASIX [Concomitant]
     Dosage: 80 MG, UNK
  8. NAPROSYN [Concomitant]
     Dosage: 500 MG, 2X/DAY
  9. ASA [Concomitant]
     Dosage: 325 MG, 2X/DAY
  10. LISINOPRIL W/HYDROCHLOROTHIAZIDE [Concomitant]
     Dosage: 20/25

REACTIONS (2)
  - Arthropathy [Unknown]
  - Post procedural complication [Unknown]
